FAERS Safety Report 23458921 (Version 3)
Quarter: 2024Q2

REPORT INFORMATION
  Report Type: Report from Study
  Country: US (occurrence: US)
  Receive Date: 20240131
  Receipt Date: 20240404
  Transmission Date: 20240715
  Serious: No
  Sender: FDA-Public Use
  Company Number: US-ACADIA PHARMACEUTICALS INC.-ACA-2024-PIM-000004

PATIENT
  Sex: Male

DRUGS (18)
  1. NUPLAZID [Suspect]
     Active Substance: PIMAVANSERIN TARTRATE
     Indication: Parkinson^s disease psychosis
     Dosage: 34 MILLIGRAM, QD
     Route: 048
     Dates: start: 20231221
  2. ACETAMINOPHEN [Concomitant]
     Active Substance: ACETAMINOPHEN
     Dosage: PO
  3. CARBIDOPA\LEVODOPA [Concomitant]
     Active Substance: CARBIDOPA\LEVODOPA
     Dosage: 25 MG-250 MG (1 TAB, PO, QID)
     Route: 048
  4. DICLOFENAC [Concomitant]
     Active Substance: DICLOFENAC
     Dosage: UNK
  5. LASIX [Concomitant]
     Active Substance: FUROSEMIDE
     Dosage: 40 MILLIGRAM, QD
     Route: 048
  6. GALANTAMINE [Concomitant]
     Active Substance: GALANTAMINE
     Dosage: 12 MILLIGRAM, BID (1 TAB, PO)
     Route: 048
  7. LATANOPROST [Concomitant]
     Active Substance: LATANOPROST
     Dosage: 0.005% SOLUTION (1 DROP, EACH AFFECTED EYE, BEDTIME)
  8. LINZESS [Concomitant]
     Active Substance: LINACLOTIDE
     Dosage: 145 MICROGRAM (1 CAPSULE, PO, DAILY, 30 MINUTES PRIOR TO THE FIRST MEAL OF THE DAY
     Route: 048
  9. NAMENDA [Concomitant]
     Active Substance: MEMANTINE HYDROCHLORIDE
     Dosage: 5 MILLIGRAM (10 MG= 2 TAB, PO, BEDTIME)
     Route: 048
  10. METHOCARBAMOL [Concomitant]
     Active Substance: METHOCARBAMOL
     Dosage: 500 MILLIGRAM (1000 MG= 2 TAB, PO, QID)
     Route: 048
  11. MUPIROCIN [Concomitant]
     Active Substance: MUPIROCIN
     Dosage: 2% ( 1 APPLI, TOP, TID)
  12. MIRALAX [Concomitant]
     Active Substance: POLYETHYLENE GLYCOL 3350
     Dosage: 17 GRAM (PO, DAILY)
  13. SERTRALINE HYDROCHLORIDE [Concomitant]
     Active Substance: SERTRALINE HYDROCHLORIDE
     Dosage: 50 MILLIGRAM (1 TAB, PO, DAILY)
  14. FLOMAX [Concomitant]
     Active Substance: TAMSULOSIN HYDROCHLORIDE
     Dosage: 0.4 MG = 1 CAP, PO, DAILY
     Route: 048
  15. TIMOPTIC [Concomitant]
     Active Substance: TIMOLOL MALEATE
     Dosage: 0.5% OPTHALMIC SOLUTION (1 DROP, BOTH EYES, BID)
  16. ATENOLOL [Concomitant]
     Active Substance: ATENOLOL
     Dosage: 25 MG
     Route: 048
  17. SINEMET CR [Concomitant]
     Active Substance: CARBIDOPA\LEVODOPA
     Dosage: 50 MG-200 MG (1 TAB, PO, BID)
     Route: 048
  18. PRAMIPEXOLE [Concomitant]
     Active Substance: PRAMIPEXOLE\PRAMIPEXOLE DIHYDROCHLORIDE
     Dosage: 0.75 MG (1 TAB, PO, BID)
     Route: 048

REACTIONS (3)
  - Condition aggravated [Unknown]
  - Illness [Unknown]
  - Drug ineffective [Unknown]
